FAERS Safety Report 9958834 (Version 5)
Quarter: 2018Q3

REPORT INFORMATION
  Report Type: Spontaneous
  Country: JP (occurrence: JP)
  Receive Date: 20140305
  Receipt Date: 20180829
  Transmission Date: 20181010
  Serious: Yes (Death, Hospitalization, Other)
  Sender: FDA-Public Use
  Company Number: JP-BAYER-2014-030020

PATIENT
  Age: 40 Year
  Sex: Female
  Weight: 85 kg

DRUGS (14)
  1. YAZ [Suspect]
     Active Substance: DROSPIRENONE\ETHINYL ESTRADIOL
     Indication: ENDOMETRIOSIS
     Dosage: UNK
     Route: 048
     Dates: start: 20130415, end: 2013
  2. LOXONIN [Concomitant]
     Active Substance: LOXOPROFEN SODIUM
     Route: 048
  3. YAZ [Suspect]
     Active Substance: DROSPIRENONE\ETHINYL ESTRADIOL
     Indication: ANAEMIA
  4. YAZ [Suspect]
     Active Substance: DROSPIRENONE\ETHINYL ESTRADIOL
     Indication: MENORRHAGIA
  5. YAZ [Suspect]
     Active Substance: DROSPIRENONE\ETHINYL ESTRADIOL
     Indication: ADENOMYOSIS
  6. YAZ [Suspect]
     Active Substance: DROSPIRENONE\ETHINYL ESTRADIOL
     Indication: DYSMENORRHOEA
  7. ALOSITOL [Concomitant]
     Active Substance: ALLOPURINOL
     Route: 048
  8. SUPRECUR [Concomitant]
     Active Substance: BUSERELIN
     Indication: HAEMOGLOBIN DECREASED
     Dosage: UNK
     Dates: start: 20121221, end: 20130315
  9. BLOPRESS [Concomitant]
     Active Substance: CANDESARTAN CILEXETIL
     Route: 048
  10. METHYCOBAL [Concomitant]
     Active Substance: METHYLCOBALAMIN
     Route: 048
  11. NORVASC [Concomitant]
     Active Substance: AMLODIPINE BESYLATE
     Indication: HYPERTENSION
     Route: 048
  12. BUFFERIN A [Concomitant]
     Route: 048
  13. BEZATOL [Concomitant]
     Active Substance: BEZAFIBRATE
     Route: 048
  14. FERROMIA [Concomitant]
     Active Substance: SODIUM FERROUS CITRATE
     Indication: HAEMOGLOBIN DECREASED
     Dosage: UNK
     Route: 048
     Dates: start: 20121221

REACTIONS (28)
  - Decreased appetite [Fatal]
  - Nausea [Fatal]
  - Dizziness [None]
  - Cold sweat [Fatal]
  - Sense of oppression [Fatal]
  - Cyanosis [Fatal]
  - Genital discharge [None]
  - Asthenia [Fatal]
  - Dyspnoea [Fatal]
  - Dizziness [Fatal]
  - Tachycardia [Fatal]
  - Feeling abnormal [Fatal]
  - Vertigo [Fatal]
  - Product use in unapproved indication [None]
  - Palpitations [Fatal]
  - Cardio-respiratory arrest [Fatal]
  - Hot flush [None]
  - Discomfort [None]
  - Loss of consciousness [Fatal]
  - Muscle fatigue [Unknown]
  - Mydriasis [Fatal]
  - Headache [None]
  - Anaemia [None]
  - Pulmonary embolism [Fatal]
  - Pelvic venous thrombosis [Unknown]
  - Gait disturbance [Fatal]
  - Pallor [Fatal]
  - Chest pain [Fatal]

NARRATIVE: CASE EVENT DATE: 20130513
